FAERS Safety Report 8508787-3 (Version None)
Quarter: 2012Q3

REPORT INFORMATION
  Report Type: 
  Country: None (occurrence: None)
  Receive Date: 20120713
  Receipt Date: 20120704
  Transmission Date: 20120928
  Serious: Yes (Other)
  Sender: FDA-Public Use
  Company Number: CA-JNJFOC-20120702611

PATIENT
  Sex: Male
  Weight: 89.3 kg

DRUGS (12)
  1. GRAVOL TAB [Concomitant]
     Route: 065
  2. TEGRETOL [Concomitant]
     Route: 065
  3. REMICADE [Suspect]
     Indication: CROHN'S DISEASE
     Dosage: START DATE APPROXIMATELY OCT-2009
     Route: 042
     Dates: start: 20090101
  4. PERCOCET [Concomitant]
     Route: 065
  5. IRON [Concomitant]
     Route: 065
  6. ASCORBIC ACID [Concomitant]
     Route: 065
  7. ALL OTHER NON-THERAPEUTIC PRODUCTS [Concomitant]
     Route: 065
  8. MULTI-VITAMINS [Concomitant]
     Route: 065
  9. CALCIUM [Concomitant]
     Route: 065
  10. VITAMIN D [Concomitant]
     Route: 065
  11. RABEPRAZOLE SODIUM [Concomitant]
     Route: 065
  12. VITAMIN B-12 [Concomitant]
     Route: 065

REACTIONS (3)
  - DERMAL CYST [None]
  - POST PROCEDURAL INFECTION [None]
  - HERNIA [None]
